FAERS Safety Report 11315044 (Version 1)
Quarter: 2015Q3

REPORT INFORMATION
  Report Type: Spontaneous
  Country: CH (occurrence: CH)
  Receive Date: 20150727
  Receipt Date: 20150727
  Transmission Date: 20151125
  Serious: Yes (Hospitalization)
  Sender: FDA-Public Use
  Company Number: CH-MEDA-2015070065

PATIENT
  Age: 94 Year
  Sex: Female
  Weight: 80 kg

DRUGS (18)
  1. TOREM 5 MG [Suspect]
     Active Substance: TORSEMIDE
     Indication: ESSENTIAL HYPERTENSION
     Route: 048
     Dates: end: 20150523
  2. AULIN [Suspect]
     Active Substance: NIMESULIDE
     Indication: BONE PAIN
     Route: 048
     Dates: end: 20150523
  3. ZOLDORM [Concomitant]
     Active Substance: ZOLPIDEM TARTRATE
  4. ZANIDIP [Concomitant]
     Active Substance: LERCANIDIPINE HYDROCHLORIDE
     Route: 048
     Dates: end: 20150523
  5. LYRICA [Concomitant]
     Active Substance: PREGABALIN
  6. REMERON [Concomitant]
     Active Substance: MIRTAZAPINE
  7. TRANDATE [Suspect]
     Active Substance: LABETALOL HYDROCHLORIDE
     Indication: ESSENTIAL HYPERTENSION
     Route: 048
     Dates: start: 20150508, end: 20150523
  8. AULIN [Suspect]
     Active Substance: NIMESULIDE
     Indication: ARTHRALGIA
     Route: 048
     Dates: end: 20150523
  9. TIATRAL 100 MG [Concomitant]
  10. TRANXILIUM 5 MG [Concomitant]
     Dates: end: 20150522
  11. PANTOZOL [Concomitant]
     Active Substance: PANTOPRAZOLE SODIUM
     Dates: end: 20150524
  12. TOBRADEX [Concomitant]
     Active Substance: DEXAMETHASONE\TOBRAMYCIN
     Dates: end: 20150524
  13. DAFALGAN [Concomitant]
     Active Substance: ACETAMINOPHEN
  14. MAGNESIUM [Concomitant]
     Active Substance: MAGNESIUM
  15. MOVICOL [Concomitant]
     Active Substance: POLYETHYLENE GLYCOL 3350\POTASSIUM CHLORIDE\SODIUM BICARBONATE\SODIUM CHLORIDE
  16. PRONTOLAX [Concomitant]
     Active Substance: BISACODYL
     Dates: end: 20150524
  17. TAMBOCOR [Suspect]
     Active Substance: FLECAINIDE ACETATE
     Indication: VENTRICULAR EXTRASYSTOLES
     Route: 048
     Dates: start: 1990, end: 20150523
  18. ATACAND [Suspect]
     Active Substance: CANDESARTAN CILEXETIL
     Indication: ESSENTIAL HYPERTENSION
     Dosage: 16 MG-0 MG-8 MG/DAY
     Route: 048
     Dates: end: 20150523

REACTIONS (8)
  - Drug interaction [Recovered/Resolved]
  - Atrioventricular block complete [Recovered/Resolved]
  - Hyperkalaemia [Recovered/Resolved]
  - Somnolence [None]
  - Acute prerenal failure [Recovered/Resolved]
  - Drug prescribing error [Unknown]
  - Hypotension [None]
  - Bradycardia [Recovered/Resolved]

NARRATIVE: CASE EVENT DATE: 201505
